FAERS Safety Report 24844494 (Version 1)
Quarter: 2025Q1

REPORT INFORMATION
  Report Type: Other
  Country: US (occurrence: US)
  Receive Date: 20250115
  Receipt Date: 20250115
  Transmission Date: 20250408
  Serious: Yes (Hospitalization, Other)
  Sender: DEXCEL
  Company Number: US-DEXPHARM-2025-0482

PATIENT
  Age: 73 Year
  Sex: Female
  Weight: 67 kg

DRUGS (13)
  1. ESOMEPRAZOLE [Suspect]
     Active Substance: ESOMEPRAZOLE
     Indication: Gastrooesophageal reflux disease
  2. METFORMIN [Suspect]
     Active Substance: METFORMIN HYDROCHLORIDE
  3. GLICLAZIDE [Suspect]
     Active Substance: GLICLAZIDE
  4. SITAGLIPTIN [Suspect]
     Active Substance: SITAGLIPTIN
  5. ACARBOSE [Concomitant]
     Active Substance: ACARBOSE
  6. IRBESARTAN [Concomitant]
     Active Substance: IRBESARTAN
     Indication: Hypertension
  7. ROSUVASTATIN [Concomitant]
     Active Substance: ROSUVASTATIN
     Indication: Dyslipidaemia
  8. ATENOLOL [Concomitant]
     Active Substance: ATENOLOL
     Indication: Atrial fibrillation
  9. DABIGATRAN [Concomitant]
     Active Substance: DABIGATRAN
     Indication: Atrial fibrillation
  10. SEMAGLUTIDE [Suspect]
     Active Substance: SEMAGLUTIDE
  11. SEMAGLUTIDE [Suspect]
     Active Substance: SEMAGLUTIDE
     Dosage: AFTER 4 DOSES DISCONTINUED THERAPY
  12. SEMAGLUTIDE [Suspect]
     Active Substance: SEMAGLUTIDE
     Dosage: DISCONTINUED AFTER 2 FURTHER 0.25 MG WEEKLY DOSES
  13. DAPAGLIFLOZIN [Concomitant]
     Active Substance: DAPAGLIFLOZIN

REACTIONS (2)
  - Hypomagnesaemia [Recovered/Resolved]
  - Hypocalcaemia [Recovered/Resolved]
